FAERS Safety Report 4290885-4 (Version None)
Quarter: 2004Q1

REPORT INFORMATION
  Report Type: 
  Country: None (occurrence: None)
  Receive Date: 20040209
  Receipt Date: 20040129
  Transmission Date: 20041129
  Serious: Yes (Other)
  Sender: FDA-Public Use
  Company Number: JP-SHR-03-017993

PATIENT
  Age: 66 Year
  Sex: Male

DRUGS (8)
  1. PROSCOPE 300(IOPROMIDE) INFUSION [Suspect]
     Indication: COMPUTERISED TOMOGRAM
     Dosage: 100 ML, DOSE, INTRAVENOUS
     Route: 042
     Dates: start: 20031120, end: 20031120
  2. LOXONIN (LOXOPROFEN SODIUM) [Suspect]
     Indication: PAIN
     Dosage: 180 MG, ORAL
     Route: 048
     Dates: start: 20031116, end: 20031127
  3. LAC B (LACTOBACILLUS BIFIDUS, LYOPHILIZED) [Concomitant]
  4. ENTERONON R (STREPTOCOCCUS LACTIS, STREPTOCOCCUS FAECALIS, LACTOBACILL [Concomitant]
  5. HALCION / NET (TRIAZOLAM) [Concomitant]
  6. THYRADIN (THYROID) [Concomitant]
  7. LANSOPRAZOLE [Concomitant]
  8. MUCOSTA (REBAMIPIDE) [Concomitant]

REACTIONS (4)
  - ELECTROCARDIOGRAM T WAVE ABNORMAL [None]
  - HYPERKALAEMIA [None]
  - IRRITABILITY [None]
  - RENAL DISORDER [None]
